FAERS Safety Report 11087554 (Version 4)
Quarter: 2015Q2

REPORT INFORMATION
  Report Type: Spontaneous
  Country: IT (occurrence: IT)
  Receive Date: 20150504
  Receipt Date: 20150519
  Transmission Date: 20150821
  Serious: Yes (Hospitalization)
  Sender: FDA-Public Use
  Company Number: IT-WATSON-2015-08860

PATIENT
  Age: 9 Year
  Sex: Male

DRUGS (7)
  1. IBUPROFEN (UNKNOWN) [Interacting]
     Active Substance: IBUPROFEN
     Indication: INFLUENZA
     Dosage: UNK, UNKNOWN
     Route: 065
  2. METOCLOPRAMIDE (UNKNOWN) [Suspect]
     Active Substance: METOCLOPRAMIDE
     Indication: INFLUENZA
     Dosage: UNK, UNKNOWN
     Route: 065
  3. DESAMETASONE FOSF                  /00016002/ [Interacting]
     Active Substance: DEXAMETHASONE SODIUM PHOSPHATE
     Indication: INFLUENZA
     Dosage: UNK, UNKNOWN
     Route: 065
  4. RISPERDAL [Interacting]
     Active Substance: RISPERIDONE
     Indication: MOVEMENT DISORDER
     Dosage: 5 MG, DAILY
     Route: 048
     Dates: start: 20140928, end: 20150110
  5. BUTAMIRATE (UNKNOWN) [Interacting]
     Active Substance: BUTAMIRATE
     Indication: INFLUENZA
     Dosage: UNK, UNKNOWN
     Route: 065
  6. PARACETAMOL  (UNKNOWN) [Interacting]
     Active Substance: ACETAMINOPHEN
     Indication: INFLUENZA
     Dosage: UNK, UNKNOWN
     Route: 065
  7. DOMPERIDONE (UNKNOWN) [Interacting]
     Active Substance: DOMPERIDONE
     Indication: INFLUENZA
     Dosage: UNK, UNKNOWN
     Route: 065

REACTIONS (2)
  - Drug interaction [Recovered/Resolved]
  - Bradycardia [Recovered/Resolved]

NARRATIVE: CASE EVENT DATE: 20150118
